FAERS Safety Report 19811767 (Version 1)
Quarter: 2021Q3

REPORT INFORMATION
  Report Type: Spontaneous
  Country: US (occurrence: US)
  Receive Date: 20210909
  Receipt Date: 20210909
  Transmission Date: 20211014
  Serious: No
  Sender: FDA-Public Use
  Company Number: US-PFIZER INC-2021516323

PATIENT
  Age: 7 Decade
  Sex: Female
  Weight: 65.77 kg

DRUGS (1)
  1. NIFEDIPINE. [Suspect]
     Active Substance: NIFEDIPINE
     Indication: HYPERTENSION
     Dosage: UNK

REACTIONS (7)
  - Peripheral swelling [Unknown]
  - Ocular discomfort [Unknown]
  - Chest pain [Unknown]
  - Visual impairment [Unknown]
  - Eye pain [Unknown]
  - Malaise [Unknown]
  - Headache [Unknown]
